FAERS Safety Report 13618784 (Version 5)
Quarter: 2017Q3

REPORT INFORMATION
  Report Type: Spontaneous
  Country: US (occurrence: US)
  Receive Date: 20170606
  Receipt Date: 20170802
  Transmission Date: 20171127
  Serious: Yes (Death, Other)
  Sender: FDA-Public Use
  Company Number: US-BAUSCH-BL-2017-018220

PATIENT
  Age: 47 Year
  Sex: Female
  Weight: 86.26 kg

DRUGS (2)
  1. XIFAXAN [Suspect]
     Active Substance: RIFAXIMIN
     Indication: HEPATIC CIRRHOSIS
     Route: 065
     Dates: start: 2017, end: 20170713
  2. XIFAXAN [Suspect]
     Active Substance: RIFAXIMIN
     Indication: HEPATIC FAILURE
     Route: 065
     Dates: end: 20170602

REACTIONS (7)
  - Confusional state [Unknown]
  - Treatment noncompliance [Unknown]
  - Hepatic failure [Fatal]
  - Malaise [Unknown]
  - Weight decreased [Recovering/Resolving]
  - Renal failure [Fatal]
  - Ammonia increased [Unknown]

NARRATIVE: CASE EVENT DATE: 201612
